FAERS Safety Report 5941646-9 (Version None)
Quarter: 2008Q4

REPORT INFORMATION
  Report Type: 
  Country: None (occurrence: None)
  Receive Date: 20081105
  Receipt Date: 20081016
  Transmission Date: 20090506
  Serious: Yes (Other)
  Sender: FDA-Public Use
  Company Number: PHHY2008MT25158

PATIENT
  Sex: Male

DRUGS (1)
  1. STALEVO 100 [Suspect]
     Indication: PARKINSONISM
     Dosage: UNK
     Route: 048
     Dates: start: 20080901

REACTIONS (1)
  - RESTLESS LEGS SYNDROME [None]
